FAERS Safety Report 7583897-6 (Version None)
Quarter: 2011Q2

REPORT INFORMATION
  Report Type: 
  Country: None (occurrence: None)
  Receive Date: 20110628
  Receipt Date: 20110628
  Transmission Date: 20111010
  Serious: Yes (Disabling)
  Sender: FDA-Public Use
  Company Number: None

PATIENT
  Age: 64 Year
  Sex: Male
  Weight: 91.173 kg

DRUGS (3)
  1. LOSARTAN POTASSIUM [Suspect]
     Indication: HYPERTENSION
     Dosage: 100MG DAILY PO
     Route: 048
  2. COZAAR [Suspect]
  3. LOSARTAN POTASSIUM [Suspect]
     Dosage: 100MG DAILY PO
     Route: 048

REACTIONS (2)
  - BLOOD PRESSURE INADEQUATELY CONTROLLED [None]
  - PRODUCT SUBSTITUTION ISSUE [None]
